FAERS Safety Report 7624290-7 (Version None)
Quarter: 2011Q3

REPORT INFORMATION
  Report Type: 
  Country: None (occurrence: None)
  Receive Date: 20110719
  Receipt Date: 20110719
  Transmission Date: 20111222
  Serious: No
  Sender: FDA-Public Use
  Company Number: None

PATIENT
  Sex: Male
  Weight: 83.9154 kg

DRUGS (1)
  1. PRADAXA [Suspect]
     Indication: ANTICOAGULANT THERAPY
     Dosage: 150 MG 2 CAP A DAY ORAL (TOOK 3 CAPSULES)
     Route: 048
     Dates: start: 20110621, end: 20110622

REACTIONS (1)
  - HAEMATURIA [None]
